FAERS Safety Report 7632479-6 (Version None)
Quarter: 2011Q3

REPORT INFORMATION
  Report Type: 
  Country: None (occurrence: None)
  Receive Date: 20110725
  Receipt Date: 20100920
  Transmission Date: 20111222
  Serious: No
  Sender: FDA-Public Use
  Company Number: US-BRISTOL-MYERS SQUIBB COMPANY-15293129

PATIENT
  Age: 91 Year
  Sex: Female

DRUGS (3)
  1. COUMADIN [Suspect]
     Dosage: DOSE DECREASED FROM 4MG TO 3 MG DAILY.
     Dates: start: 20100101
  2. CHOLESTEROL MEDICATION [Concomitant]
  3. BLOOD PRESSURE MEDICATION [Concomitant]

REACTIONS (1)
  - FREQUENT BOWEL MOVEMENTS [None]
